FAERS Safety Report 11753004 (Version 1)
Quarter: 2015Q4

REPORT INFORMATION
  Report Type: Report from Study
  Country: CL (occurrence: CL)
  Receive Date: 20151119
  Receipt Date: 20151119
  Transmission Date: 20160304
  Serious: Yes (Death)
  Sender: FDA-Public Use
  Company Number: CL-ROCHE-1663222

PATIENT
  Age: 59 Year
  Sex: Male
  Weight: 68 kg

DRUGS (2)
  1. CELECOXIB. [Concomitant]
     Active Substance: CELECOXIB
     Indication: OSTEOARTHRITIS
     Route: 048
     Dates: start: 2013
  2. XELODA [Suspect]
     Active Substance: CAPECITABINE
     Indication: COLORECTAL CANCER
     Dosage: 7 DAYS PER CYCLE WITH EACH DOSE?4000/3500 MG
     Route: 048
     Dates: start: 20150318

REACTIONS (3)
  - Brain neoplasm [Fatal]
  - Colon cancer [Fatal]
  - Metastases to lung [Fatal]
